FAERS Safety Report 24928470 (Version 1)
Quarter: 2025Q1

REPORT INFORMATION
  Report Type: Spontaneous
  Country: US (occurrence: None)
  Receive Date: 20250204
  Receipt Date: 20250204
  Transmission Date: 20250408
  Serious: No
  Sender: FDA-CTU
  Company Number: None

PATIENT
  Age: 16 Year
  Sex: Female
  Weight: 58.5 kg

DRUGS (1)
  1. VTAMA [Suspect]
     Active Substance: TAPINAROF
     Indication: Eczema
     Dosage: 1 GRAM DAILY TOPICAL
     Route: 061
     Dates: start: 20250130, end: 20250131

REACTIONS (4)
  - Application site erythema [None]
  - Application site swelling [None]
  - Feeling hot [None]
  - Sensitive skin [None]

NARRATIVE: CASE EVENT DATE: 20250131
